FAERS Safety Report 25390735 (Version 1)
Quarter: 2025Q2

REPORT INFORMATION
  Report Type: Spontaneous
  Country: US (occurrence: None)
  Receive Date: 20250603
  Receipt Date: 20250603
  Transmission Date: 20250717
  Serious: Yes (Hospitalization)
  Sender: FDA-CTU
  Company Number: None

PATIENT
  Age: 41 Year
  Sex: Female
  Weight: 81 kg

DRUGS (13)
  1. WEGOVY [Suspect]
     Active Substance: SEMAGLUTIDE
     Indication: Weight decreased
     Dosage: OTHER QUANTITY : 0.5 ML;?OTHER FREQUENCY : WEEKLY;?
     Route: 058
     Dates: start: 20250219, end: 20250227
  2. CELEXA [Concomitant]
     Active Substance: CITALOPRAM HYDROBROMIDE
  3. SPIRONOLACTONE [Concomitant]
     Active Substance: SPIRONOLACTONE
  4. METOPROLOL [Concomitant]
     Active Substance: METOPROLOL
  5. EMGALITY [Concomitant]
     Active Substance: GALCANEZUMAB-GNLM
  6. RIZATRIPTAN [Concomitant]
     Active Substance: RIZATRIPTAN
  7. UBRELVY [Concomitant]
     Active Substance: UBROGEPANT
  8. POTASSIUM CHLORIDE [Concomitant]
     Active Substance: POTASSIUM CHLORIDE
  9. B12 [Concomitant]
  10. vitamin c with iron [Concomitant]
  11. VITAMINS [Concomitant]
     Active Substance: VITAMINS
  12. VITAMIN D [Concomitant]
     Active Substance: VITAMIN D NOS
  13. magnesium glyphisate [Concomitant]

REACTIONS (2)
  - Hyperaldosteronism [None]
  - Hypokalaemia [None]

NARRATIVE: CASE EVENT DATE: 20250227
